FAERS Safety Report 13121755 (Version 1)
Quarter: 2017Q1

REPORT INFORMATION
  Report Type: Spontaneous
  Country: US (occurrence: US)
  Receive Date: 20170115
  Receipt Date: 20170115
  Transmission Date: 20170428
  Serious: No
  Sender: FDA-Public Use
  Company Number: None

PATIENT
  Age: 18 Year
  Sex: Female
  Weight: 48.1 kg

DRUGS (4)
  1. BUSIPRONE [Concomitant]
  2. UP AND UP WOMENS LAXATIVE [Suspect]
     Active Substance: BISACODYL
     Indication: CONSTIPATION
     Dosage: ?          QUANTITY:1 TABLET(S);?
     Route: 048
     Dates: start: 20170115, end: 20170115
  3. LO MINASTRIN FE [Concomitant]
     Active Substance: ETHINYL ESTRADIOL\NORETHINDRONE ACETATE
  4. ALIEVE [Concomitant]

REACTIONS (4)
  - Diarrhoea [None]
  - Abdominal pain upper [None]
  - Pyrexia [None]
  - Nausea [None]

NARRATIVE: CASE EVENT DATE: 20170115
